FAERS Safety Report 12904114 (Version 1)
Quarter: 2016Q4

REPORT INFORMATION
  Report Type: Spontaneous
  Country: TR (occurrence: TR)
  Receive Date: 20161102
  Receipt Date: 20161102
  Transmission Date: 20170207
  Serious: Yes (Other)
  Sender: FDA-Public Use
  Company Number: TR-TEVA-707601ISR

PATIENT
  Age: 16 Month
  Sex: Female

DRUGS (2)
  1. CARBOPLATIN. [Suspect]
     Active Substance: CARBOPLATIN
     Dosage: 175 MG/M2 DAILY;
  2. VINCRISTINE [Suspect]
     Active Substance: VINCRISTINE
     Dosage: 1.5 MG/M2 DAILY;

REACTIONS (5)
  - Drug hypersensitivity [Recovered/Resolved]
  - Lip swelling [Recovered/Resolved]
  - Rash maculo-papular [Recovered/Resolved]
  - Swelling face [Recovered/Resolved]
  - Cough [Recovered/Resolved]
